FAERS Safety Report 25199362 (Version 3)
Quarter: 2025Q3

REPORT INFORMATION
  Report Type: Report from Study
  Country: BR (occurrence: BR)
  Receive Date: 20250415
  Receipt Date: 20250715
  Transmission Date: 20251021
  Serious: Yes (Hospitalization, Other)
  Sender: NOVARTIS
  Company Number: BR-002147023-NVSC2025BR061036

PATIENT
  Sex: Female
  Weight: 96 kg

DRUGS (4)
  1. KISQALI [Suspect]
     Active Substance: RIBOCICLIB SUCCINATE
     Indication: Metastases to bone
     Dosage: 200 MG, 3 DF, TID (EVERY 21 DAYS, 7 DAYS PAUSE)
     Route: 065
     Dates: start: 202502
  2. KISQALI [Suspect]
     Active Substance: RIBOCICLIB SUCCINATE
     Indication: Metastases to liver
     Route: 065
     Dates: start: 20250416
  3. ATENOLOL [Concomitant]
     Active Substance: ATENOLOL
     Indication: Product used for unknown indication
     Dosage: UNK, BID, IN MORNING AND EVENING
     Route: 065
  4. HYDROCHLOROTHIAZIDE [Concomitant]
     Active Substance: HYDROCHLOROTHIAZIDE
     Indication: Product used for unknown indication
     Dosage: UNK, QD, IN THE MORNING
     Route: 065

REACTIONS (8)
  - Decreased immune responsiveness [Recovered/Resolved]
  - Liver disorder [Unknown]
  - Decreased immune responsiveness [Recovering/Resolving]
  - Pneumonia [Unknown]
  - Pneumonia [Recovered/Resolved]
  - Hepatic enzyme increased [Recovered/Resolved]
  - Memory impairment [Unknown]
  - Pain [Recovering/Resolving]
